FAERS Safety Report 19000512 (Version 2)
Quarter: 2021Q1

REPORT INFORMATION
  Report Type: Spontaneous
  Country: IL (occurrence: IL)
  Receive Date: 20210311
  Receipt Date: 20210329
  Transmission Date: 20210420
  Serious: Yes (Hospitalization)
  Sender: FDA-Public Use
  Company Number: IL-CELGENEUS-ISR-20210302006

PATIENT
  Age: 53 Year
  Sex: Male
  Weight: 63.9 kg

DRUGS (30)
  1. ACYCLOVIR. [Concomitant]
     Active Substance: ACYCLOVIR
     Indication: VIRAL INFECTION
     Route: 065
  2. ENALADEX [Concomitant]
     Active Substance: ENALAPRIL MALEATE
     Indication: HYPERTENSION
     Dosage: 5 MILLIGRAM
     Route: 048
     Dates: start: 20200811
  3. CYCLOSPORIN [Concomitant]
     Active Substance: CYCLOSPORINE
     Indication: GRAFT VERSUS HOST DISEASE
     Dosage: 75+50MG
     Route: 048
     Dates: start: 202101
  4. PREDNISONE. [Concomitant]
     Active Substance: PREDNISONE
     Indication: PRURITUS
     Dosage: 20 MILLIGRAM
     Route: 048
     Dates: start: 202011
  5. PREDNISONE. [Concomitant]
     Active Substance: PREDNISONE
     Indication: PROPHYLAXIS
  6. VENETOCLAX. [Suspect]
     Active Substance: VENETOCLAX
     Indication: ACUTE MYELOID LEUKAEMIA
     Dosage: 100 MILLIGRAM
     Route: 048
     Dates: start: 20200802, end: 20201017
  7. OMNIC [Concomitant]
     Active Substance: TAMSULOSIN HYDROCHLORIDE
     Indication: URINARY RETENTION
     Dosage: .4 MILLIGRAM
     Route: 048
     Dates: start: 20201118
  8. AZENIL [Concomitant]
     Indication: THERAPEUTIC PROCEDURE
  9. SOLU?MEDROL [Concomitant]
     Active Substance: METHYLPREDNISOLONE SODIUM SUCCINATE
     Indication: THERAPEUTIC PROCEDURE
  10. OMEPRADEX [Concomitant]
     Active Substance: OMEPRAZOLE
     Indication: PROPHYLAXIS
     Route: 048
  11. DISEPTYL FORTE [Concomitant]
     Indication: PROPHYLAXIS
  12. FLUOROMETHOLONE. [Concomitant]
     Active Substance: FLUOROMETHOLONE
     Indication: GRAFT VERSUS HOST DISEASE
     Dosage: .4 PERCENT
     Route: 047
     Dates: start: 20201126
  13. VALCYTE [Concomitant]
     Active Substance: VALGANCICLOVIR HYDROCHLORIDE
     Indication: CYTOMEGALOVIRUS INFECTION REACTIVATION
     Dosage: 1800 MILLIGRAM
     Route: 048
     Dates: start: 20210131
  14. PROTOPIC [Concomitant]
     Active Substance: TACROLIMUS
     Indication: GRAFT VERSUS HOST DISEASE
     Route: 061
     Dates: start: 20210114, end: 202102
  15. AZACITIDINE. [Suspect]
     Active Substance: AZACITIDINE
     Indication: ACUTE MYELOID LEUKAEMIA
     Dosage: 20 MILLIGRAM/SQ. METER (CYCLE 1 TO 4: DAYS 1 TO 5)
     Route: 058
     Dates: start: 20200802, end: 20201105
  16. CALCIUM+ VITAMIN D [Concomitant]
     Indication: OSTEOPOROSIS PROPHYLAXIS
     Dosage: 1 TABLET
     Route: 048
     Dates: start: 20200730
  17. DISEPTYL FORTE [Concomitant]
     Indication: VIRAL INFECTION
     Dosage: 160/800MG
     Route: 048
     Dates: start: 20200611
  18. SOLU?MEDROL [Concomitant]
     Active Substance: METHYLPREDNISOLONE SODIUM SUCCINATE
     Indication: GRAFT VERSUS HOST DISEASE
     Dosage: 40 MILLIGRAM
     Route: 041
     Dates: start: 202101, end: 202101
  19. VENETOCLAX. [Suspect]
     Active Substance: VENETOCLAX
     Dosage: 200 MILLIGRAM
     Route: 048
     Dates: start: 20201101, end: 20201109
  20. SERETIDE [Concomitant]
     Active Substance: FLUTICASONE PROPIONATE\SALMETEROL XINAFOATE
     Indication: GRAFT VERSUS HOST DISEASE
     Dosage: 2 PUFF
     Route: 055
     Dates: start: 202101
  21. SERETIDE [Concomitant]
     Active Substance: FLUTICASONE PROPIONATE\SALMETEROL XINAFOATE
     Indication: THERAPEUTIC PROCEDURE
  22. NOXAFIL [Concomitant]
     Active Substance: POSACONAZOLE
     Indication: FUNGAL INFECTION
     Dosage: 300 MILLIGRAM
     Route: 048
     Dates: start: 20201202
  23. AZENIL [Concomitant]
     Indication: GRAFT VERSUS HOST DISEASE
     Dosage: 250 MILLIGRAM
     Route: 048
     Dates: start: 202101
  24. CYCLOSPORIN [Concomitant]
     Active Substance: CYCLOSPORINE
     Indication: THERAPEUTIC PROCEDURE
  25. AVODART [Concomitant]
     Active Substance: DUTASTERIDE
     Indication: URINARY RETENTION
     Dosage: .5 MILLIGRAM
     Route: 048
     Dates: start: 20201225
  26. ACYCLOVIR. [Concomitant]
     Active Substance: ACYCLOVIR
     Indication: PROPHYLAXIS
  27. FLUOROMETHOLONE. [Concomitant]
     Active Substance: FLUOROMETHOLONE
     Indication: THERAPEUTIC PROCEDURE
  28. AMLODIPINE [Concomitant]
     Active Substance: AMLODIPINE BESYLATE
     Indication: HYPERTENSION
     Dosage: 10 MILLIGRAM
     Route: 048
     Dates: start: 20200709
  29. NOXAFIL [Concomitant]
     Active Substance: POSACONAZOLE
     Indication: PROPHYLAXIS
  30. PREDNISONE. [Concomitant]
     Active Substance: PREDNISONE
     Indication: GRAFT VERSUS HOST DISEASE
     Dosage: 20 MILLIGRAM
     Route: 048
     Dates: start: 20210105

REACTIONS (1)
  - Pneumonia [Not Recovered/Not Resolved]

NARRATIVE: CASE EVENT DATE: 20210223
